FAERS Safety Report 8966364 (Version 2)
Quarter: 2012Q4

REPORT INFORMATION
  Report Type: 
  Country: JP (occurrence: JP)
  Receive Date: 20121217
  Receipt Date: 20121227
  Transmission Date: 20130627
  Serious: Yes (Hospitalization)
  Sender: FDA-Public Use
  Company Number: JP-ELI_LILLY_AND_COMPANY-JP201212002734

PATIENT
  Age: 72 Year
  Sex: Female
  Weight: 55 kg

DRUGS (6)
  1. CYMBALTA [Suspect]
     Indication: DIABETIC NEUROPATHY
     Dosage: 20 mg, each evening
     Route: 048
     Dates: start: 20121202, end: 20121202
  2. BASEN [Concomitant]
     Indication: TYPE 2 DIABETES MELLITUS
     Dosage: 0.3 mg, tid
     Route: 048
     Dates: start: 20050812
  3. GLUFAST [Concomitant]
     Indication: TYPE 2 DIABETES MELLITUS
     Dosage: 10 mg, qd
     Route: 048
     Dates: start: 20050812
  4. LIPITOR [Concomitant]
     Indication: DYSLIPIDAEMIA
     Dosage: 10 mg, qd
     Route: 048
     Dates: start: 20050812
  5. LOXONIN [Concomitant]
     Indication: DIABETIC NEUROPATHY
     Dosage: 100 mg, qd
     Route: 062
     Dates: start: 20101001
  6. DEPAS [Concomitant]
     Indication: INSOMNIA
     Dosage: 0.5 mg, qd
     Route: 048
     Dates: start: 20051202

REACTIONS (4)
  - Loss of consciousness [Recovered/Resolved]
  - Nausea [Recovered/Resolved]
  - Convulsion [Recovered/Resolved]
  - Drug prescribing error [Recovered/Resolved]
